FAERS Safety Report 8387936-4 (Version None)
Quarter: 2012Q2

REPORT INFORMATION
  Report Type: 
  Country: None (occurrence: None)
  Receive Date: 20120525
  Receipt Date: 20120521
  Transmission Date: 20120825
  Serious: Yes (Other)
  Sender: FDA-Public Use
  Company Number: US-BAYER-2012-018793

PATIENT
  Age: 22 Year
  Sex: Female
  Weight: 74.83 kg

DRUGS (4)
  1. ADVIL [Concomitant]
  2. BACTRIM [Concomitant]
     Dosage: 800MG/160MG
     Dates: start: 20090101
  3. YAZ [Suspect]
     Indication: CONTRACEPTION
     Dosage: UNK
     Dates: start: 20080701, end: 20091001
  4. OXYCODONE/ACETAMINOPHEN [Concomitant]
     Dosage: 5MG/325MG
     Dates: start: 20090101

REACTIONS (3)
  - GALLBLADDER DISORDER [None]
  - MENTAL DISORDER [None]
  - CHOLECYSTITIS CHRONIC [None]
